FAERS Safety Report 13241796 (Version 1)
Quarter: 2017Q1

REPORT INFORMATION
  Report Type: Spontaneous
  Country: US (occurrence: US)
  Receive Date: 20170217
  Receipt Date: 20170217
  Transmission Date: 20170428
  Serious: No
  Sender: FDA-Public Use
  Company Number: US-PFIZER INC-2017066925

PATIENT
  Sex: Female

DRUGS (1)
  1. XELJANZ [Suspect]
     Active Substance: TOFACITINIB CITRATE
     Dosage: 5 MG, UNK

REACTIONS (13)
  - Joint swelling [Unknown]
  - Dry eye [Unknown]
  - Nausea [Unknown]
  - Skin erosion [Unknown]
  - Abdominal pain [Unknown]
  - Dyspepsia [Unknown]
  - Ocular hyperaemia [Unknown]
  - Arthralgia [Unknown]
  - Alopecia [Unknown]
  - Headache [Unknown]
  - Photosensitivity reaction [Unknown]
  - Dyspnoea [Unknown]
  - Visual acuity reduced [Unknown]
